FAERS Safety Report 9076912 (Version 1)
Quarter: 2013Q1

REPORT INFORMATION
  Report Type: Report from Study
  Country: US (occurrence: US)
  Receive Date: 20130129
  Receipt Date: 20130129
  Transmission Date: 20140127
  Serious: No
  Sender: FDA-Public Use
  Company Number: US-ABBOTT-12P-163-0937491-00

PATIENT
  Age: 52 Year
  Sex: Male

DRUGS (8)
  1. HUMIRA 40 MG/0.8 ML PEN [Suspect]
     Indication: CROHN^S DISEASE
     Dates: start: 20120515
  2. HUMIRA 40 MG/0.8 ML PEN [Suspect]
  3. METFORMIN [Concomitant]
     Indication: TYPE 2 DIABETES MELLITUS
     Route: 048
  4. ALLOPURINOL [Concomitant]
     Indication: GOUT
  5. BENICAR [Concomitant]
     Indication: HYPERTENSION
     Route: 048
  6. COLCHICINE [Concomitant]
     Indication: GOUT
     Route: 048
  7. CALCIUM [Concomitant]
     Indication: ROUTINE HEALTH MAINTENANCE
     Dosage: OVER-THE-COUNTER; DAILY
     Route: 048
  8. VITAMINS [Concomitant]
     Indication: ROUTINE HEALTH MAINTENANCE
     Dosage: DAILY
     Route: 048

REACTIONS (9)
  - Gingival swelling [Not Recovered/Not Resolved]
  - Oedema mouth [Not Recovered/Not Resolved]
  - Pruritus [Not Recovered/Not Resolved]
  - Drug ineffective [Unknown]
  - Arthralgia [Unknown]
  - Gait disturbance [Unknown]
  - Loose tooth [Unknown]
  - Abdominal distension [Unknown]
  - Ulcer [Unknown]
